FAERS Safety Report 9958183 (Version 1)
Quarter: 2014Q1

REPORT INFORMATION
  Report Type: Report from Study
  Country: US (occurrence: US)
  Receive Date: 20140304
  Receipt Date: 20140304
  Transmission Date: 20141002
  Serious: No
  Sender: FDA-Public Use
  Company Number: US-ABBVIE-13P-163-1095151-00

PATIENT
  Age: 65 Year
  Sex: Male
  Weight: 89.44 kg

DRUGS (9)
  1. HUMIRA [Suspect]
     Indication: RHEUMATOID ARTHRITIS
     Route: 058
     Dates: start: 201302
  2. METOPROLOL [Concomitant]
     Indication: BLOOD PRESSURE
  3. LEXAPRO [Concomitant]
     Indication: ANXIETY
  4. SIMVASTATIN [Concomitant]
     Indication: GASTROOESOPHAGEAL REFLUX DISEASE
  5. MECLIZINE [Concomitant]
     Indication: DIZZINESS
  6. METHOTREXATE [Concomitant]
     Indication: RHEUMATOID ARTHRITIS
  7. FOLIC ACID [Concomitant]
     Indication: VITAMIN SUPPLEMENTATION
  8. ZESTRIL [Concomitant]
     Indication: BLOOD PRESSURE
  9. FISH OIL [Concomitant]
     Indication: PRODUCT USED FOR UNKNOWN INDICATION

REACTIONS (2)
  - Medication error [Unknown]
  - Incorrect drug dosage form administered [Unknown]
